FAERS Safety Report 5757134-9 (Version None)
Quarter: 2008Q2

REPORT INFORMATION
  Report Type: 
  Country: None (occurrence: None)
  Receive Date: 20080529
  Receipt Date: 20080513
  Transmission Date: 20081010
  Serious: Yes (Other)
  Sender: FDA-Public Use
  Company Number: 430002E07USA

PATIENT
  Age: 58 Year
  Sex: Male

DRUGS (2)
  1. NOVANTRONE [Suspect]
     Dosage: 6 CYCLE
     Dates: start: 20030121, end: 20030505
  2. ANTI-ANDROGENS [Suspect]

REACTIONS (3)
  - ACUTE PROMYELOCYTIC LEUKAEMIA [None]
  - DISSEMINATED INTRAVASCULAR COAGULATION [None]
  - LEUKOCYTOSIS [None]
